FAERS Safety Report 4712667-9 (Version None)
Quarter: 2005Q3

REPORT INFORMATION
  Report Type: 
  Country: None (occurrence: None)
  Receive Date: 20050706
  Receipt Date: 20050223
  Transmission Date: 20060218
  Serious: Yes (Hospitalization)
  Sender: FDA-Public Use
  Company Number: US-2004-035072

PATIENT
  Age: 42 Year
  Sex: Female

DRUGS (4)
  1. CAMPATH [Suspect]
     Indication: CHRONIC LYMPHOCYTIC LEUKAEMIA
     Dates: start: 20041101
  2. RITUXAN [Suspect]
     Indication: CHRONIC LYMPHOCYTIC LEUKAEMIA
     Dates: start: 20041101
  3. SULFAMTHOXAZOLE W/TRIMETHOPRIM [Concomitant]
  4. FAMVIR /NET/(PENCICLOVIR) [Concomitant]

REACTIONS (2)
  - CYTOMEGALOVIRUS ANTIGEN POSITIVE [None]
  - LOBAR PNEUMONIA [None]
